FAERS Safety Report 8610516-X (Version None)
Quarter: 2012Q3

REPORT INFORMATION
  Report Type: 
  Country: None (occurrence: None)
  Receive Date: 20120822
  Receipt Date: 20120725
  Transmission Date: 20120928
  Serious: No
  Sender: FDA-Public Use
  Company Number: US-BAYER-2012-083652

PATIENT
  Age: 51 Year
  Sex: Female

DRUGS (3)
  1. AVELOX [Suspect]
     Indication: SINUSITIS
     Dosage: 400 MG, QD
     Route: 042
     Dates: start: 20120529, end: 20120529
  2. NASONEX [Concomitant]
  3. CELEBREX [Concomitant]

REACTIONS (2)
  - INSOMNIA [None]
  - VERTIGO [None]
